FAERS Safety Report 4375937-2 (Version None)
Quarter: 2004Q2

REPORT INFORMATION
  Report Type: 
  Country: None (occurrence: None)
  Receive Date: 20040607
  Receipt Date: 20040524
  Transmission Date: 20050107
  Serious: Yes (Life-Threatening, Congenital Anomaly)
  Sender: FDA-Public Use
  Company Number: ZONI001435

PATIENT
  Age: 9 Month
  Sex: Female

DRUGS (7)
  1. EXCEGRAN (ZONISAMIDE) [Suspect]
     Indication: EPILEPSY
     Dosage: 60 MG ORAL
     Route: 048
     Dates: start: 20031203, end: 20040309
  2. DEPAKENE [Suspect]
     Indication: EPILEPSY
     Dosage: 199.8 MG
     Dates: start: 20031203, end: 20040309
  3. CORTROSYN Z (TETRACOSACTIDE) [Concomitant]
  4. CLARITHROMYCIN [Concomitant]
  5. ENTERONON (LACTOBACILLUS ACIDOPHILUS) [Concomitant]
  6. MUCODYNE (CARBOCISTEREINE) [Concomitant]
  7. BISOLVON (BROMHEXINE HYDROCHLORIDE) [Concomitant]

REACTIONS (9)
  - CEREBRAL DISORDER [None]
  - CONGENITAL BRAIN DAMAGE [None]
  - INTERSTITIAL LUNG DISEASE [None]
  - MYOCLONIC EPILEPSY [None]
  - OXYGEN SATURATION DECREASED [None]
  - PARALYSIS [None]
  - STRIDOR [None]
  - UNEVALUABLE EVENT [None]
  - VIRUS SEROLOGY TEST POSITIVE [None]
